FAERS Safety Report 5112847-7 (Version None)
Quarter: 2006Q3

REPORT INFORMATION
  Report Type: 
  Country: None (occurrence: None)
  Receive Date: 20060922
  Receipt Date: 20060912
  Transmission Date: 20061208
  Serious: Yes (Hospitalization)
  Sender: FDA-Public Use
  Company Number: US-AMGEN-US193402

PATIENT
  Sex: Female

DRUGS (2)
  1. ENBREL [Suspect]
     Indication: RHEUMATOID ARTHRITIS
     Route: 058
     Dates: start: 19990801
  2. METHOTREXATE [Concomitant]
     Dates: start: 19960101

REACTIONS (4)
  - ABDOMINAL ADHESIONS [None]
  - CATARACT [None]
  - OVARIAN MASS [None]
  - URINARY INCONTINENCE [None]
